FAERS Safety Report 7637014-4 (Version None)
Quarter: 2011Q3

REPORT INFORMATION
  Report Type: 
  Country: None (occurrence: None)
  Receive Date: 20110726
  Receipt Date: 20110721
  Transmission Date: 20111222
  Serious: Yes (Other)
  Sender: FDA-Public Use
  Company Number: FR-PFIZER INC-2011165795

PATIENT
  Age: 65 Year
  Sex: Female

DRUGS (6)
  1. ASPIRIN [Concomitant]
     Dosage: UNK
     Dates: start: 20101201
  2. OROCAL [Concomitant]
  3. ATORVASTATIN CALCIUM [Suspect]
     Dosage: 10 MG, UNK
     Dates: start: 20101201, end: 20110721
  4. SOTALOL HCL [Concomitant]
     Dosage: UNK
     Dates: start: 20101201
  5. NICOTINIC ACID AMIDE [Concomitant]
  6. MAGNE-B6 [Concomitant]

REACTIONS (3)
  - MYALGIA [None]
  - OSTEOARTHRITIS [None]
  - BACK PAIN [None]
